FAERS Safety Report 13638004 (Version 1)
Quarter: 2017Q2

REPORT INFORMATION
  Report Type: Spontaneous
  Country: US (occurrence: US)
  Receive Date: 20170609
  Receipt Date: 20170609
  Transmission Date: 20170830
  Serious: Yes (Other)
  Sender: FDA-Public Use
  Company Number: US-BAYER-2017-110878

PATIENT
  Age: 77 Year
  Sex: Female

DRUGS (1)
  1. GADAVIST [Suspect]
     Active Substance: GADOBUTROL
     Indication: NUCLEAR MAGNETIC RESONANCE IMAGING BRAIN
     Dosage: 9 ML, ONCE
     Route: 042
     Dates: start: 20170601, end: 20170601

REACTIONS (4)
  - Seizure [None]
  - Chest pain [None]
  - Rash pruritic [None]
  - Balance disorder [None]

NARRATIVE: CASE EVENT DATE: 20170601
